FAERS Safety Report 7661583-1 (Version None)
Quarter: 2011Q3

REPORT INFORMATION
  Report Type: 
  Country: None (occurrence: None)
  Receive Date: 20110805
  Receipt Date: 20110726
  Transmission Date: 20111222
  Serious: Yes (Hospitalization, Other)
  Sender: FDA-Public Use
  Company Number: US-CELGENEUS-163-21880-11062869

PATIENT
  Sex: Female
  Weight: 69.916 kg

DRUGS (11)
  1. JANUVIA [Concomitant]
     Route: 065
  2. GLUCOPHAGE [Concomitant]
     Route: 065
  3. TENORETIC [Concomitant]
     Route: 065
  4. EFFEXOR [Concomitant]
     Route: 065
  5. DIFLUCAN [Concomitant]
     Dosage: 200 MILLIGRAM
     Route: 048
  6. REVLIMID [Suspect]
     Indication: MULTIPLE MYELOMA
     Dosage: 25 MILLIGRAM
     Route: 048
     Dates: start: 20110525, end: 20110617
  7. ALLEGRA [Concomitant]
     Route: 065
  8. DECADRON [Concomitant]
     Route: 065
  9. DIFLUCAN [Concomitant]
     Dosage: 100 MILLIGRAM
     Route: 048
  10. XANAX [Concomitant]
     Route: 065
  11. OMEPRAZOLE [Concomitant]
     Dosage: 20 MILLIGRAM
     Route: 048

REACTIONS (3)
  - DEHYDRATION [None]
  - CROHN'S DISEASE [None]
  - DIARRHOEA [None]
